FAERS Safety Report 8283669-3 (Version None)
Quarter: 2012Q2

REPORT INFORMATION
  Report Type: 
  Country: None (occurrence: None)
  Receive Date: 20120413
  Receipt Date: 20120404
  Transmission Date: 20120825
  Serious: Yes (Hospitalization)
  Sender: FDA-Public Use
  Company Number: PHFR2012GB002095

PATIENT
  Age: 65 Year
  Sex: Female

DRUGS (9)
  1. METOLAZONE [Interacting]
     Route: 048
     Dates: end: 20120308
  2. DICLOFENAC SODIUM [Interacting]
     Dosage: 50 MG, TID
     Route: 048
     Dates: end: 20120308
  3. ALBUTEROL [Concomitant]
  4. LOSARTAN POTASSIUM [Suspect]
     Route: 048
     Dates: end: 20120308
  5. CITALOPRAM HYDROBROMIDE [Concomitant]
  6. MORPHINE [Interacting]
     Indication: PAIN
     Dosage: 05 MG, BID
     Route: 048
     Dates: start: 20120304, end: 20120308
  7. OMEPRAZOLE [Concomitant]
  8. ACETAMINOPHEN [Concomitant]
  9. PREGABALIN [Concomitant]

REACTIONS (5)
  - DEHYDRATION [None]
  - TOXICITY TO VARIOUS AGENTS [None]
  - SOMNOLENCE [None]
  - RENAL FAILURE ACUTE [None]
  - CONFUSIONAL STATE [None]
